FAERS Safety Report 5631959-2 (Version None)
Quarter: 2008Q1

REPORT INFORMATION
  Report Type: 
  Country: None (occurrence: None)
  Receive Date: 20080220
  Receipt Date: 20080211
  Transmission Date: 20080703
  Serious: Yes (Hospitalization, Other)
  Sender: FDA-Public Use
  Company Number: ES-ELI_LILLY_AND_COMPANY-ES200802002346

PATIENT
  Age: 62 Year
  Sex: Male

DRUGS (5)
  1. ALIMTA [Suspect]
     Indication: LUNG NEOPLASM MALIGNANT
     Dosage: 500 MG, UNKNOWN
     Route: 042
     Dates: start: 20071212, end: 20071215
  2. LEVOFLOXACIN [Concomitant]
     Dosage: UNK, UNKNOWN
     Route: 065
  3. ANALGESICS [Concomitant]
     Dosage: UNK, UNKNOWN
     Route: 065
  4. FOLIC ACID [Concomitant]
     Dosage: UNK, UNKNOWN
     Route: 065
  5. VITAMIN B [Concomitant]
     Dosage: UNK, UNKNOWN
     Route: 065

REACTIONS (5)
  - ENCEPHALITIS PERIAXIALIS DIFFUSA [None]
  - HYPERSENSITIVITY [None]
  - PYREXIA [None]
  - RASH [None]
  - SERUM FERRITIN INCREASED [None]
